FAERS Safety Report 4863826-6 (Version None)
Quarter: 2005Q4

REPORT INFORMATION
  Report Type: 
  Country: None (occurrence: None)
  Receive Date: 20051222
  Receipt Date: 20050928
  Transmission Date: 20060501
  Serious: No
  Sender: FDA-Public Use
  Company Number: US-GLAXOSMITHKLINE-A0576266A

PATIENT
  Age: 25 Year
  Sex: Female
  Weight: 108.6 kg

DRUGS (3)
  1. FLONASE [Suspect]
     Dosage: 2SPR PER DAY
     Route: 045
     Dates: start: 20050920, end: 20050920
  2. NEXIUM [Concomitant]
  3. NAPROSYN [Concomitant]
     Route: 048

REACTIONS (3)
  - PRURITUS [None]
  - RASH MACULAR [None]
  - SWELLING FACE [None]
